FAERS Safety Report 11803765 (Version 2)
Quarter: 2016Q1

REPORT INFORMATION
  Report Type: Spontaneous
  Country: PT (occurrence: PT)
  Receive Date: 20151204
  Receipt Date: 20160113
  Transmission Date: 20160525
  Serious: Yes (Other)
  Sender: FDA-Public Use
  Company Number: PHHY2015PT159105

PATIENT
  Sex: Male

DRUGS (1)
  1. EXELON PATCH [Suspect]
     Active Substance: RIVASTIGMINE
     Indication: DEMENTIA WITH LEWY BODIES
     Dosage: 4.6 MG (PATCH 5CM2), UNK
     Route: 062

REACTIONS (4)
  - Agitation [Unknown]
  - Paradoxical drug reaction [Unknown]
  - Drug intolerance [Unknown]
  - Product use issue [Unknown]
